FAERS Safety Report 9586181 (Version 1)
Quarter: 2013Q4

REPORT INFORMATION
  Report Type: Spontaneous
  Country: US (occurrence: US)
  Receive Date: 20131003
  Receipt Date: 20131003
  Transmission Date: 20140711
  Serious: Yes (Life-Threatening, Other)
  Sender: FDA-Public Use
  Company Number: US-SA-2013SA095243

PATIENT
  Age: 49 Year
  Sex: Female
  Weight: 92.5 kg

DRUGS (1)
  1. LUMIZYME [Suspect]
     Indication: GLYCOGEN STORAGE DISEASE TYPE II
     Route: 042

REACTIONS (1)
  - Myocardial infarction [Recovering/Resolving]
